FAERS Safety Report 5524539-0 (Version None)
Quarter: 2007Q4

REPORT INFORMATION
  Report Type: 
  Country: None (occurrence: None)
  Receive Date: 20071123
  Receipt Date: 20071109
  Transmission Date: 20080405
  Serious: Yes (Death)
  Sender: FDA-Public Use
  Company Number: GB-RANBAXY-2007RR-11387

PATIENT

DRUGS (1)
  1. AMOXICILLIN CAPSULES BP 500MG [Suspect]
     Indication: DYSURIA

REACTIONS (2)
  - COLITIS [None]
  - HAEMATURIA [None]
